FAERS Safety Report 19579218 (Version 2)
Quarter: 2021Q3

REPORT INFORMATION
  Report Type: Spontaneous
  Country: FR (occurrence: FR)
  Receive Date: 20210720
  Receipt Date: 20210806
  Transmission Date: 20211014
  Serious: Yes (Other)
  Sender: FDA-Public Use
  Company Number: FR-AUROBINDO-AUR-APL-2021-031584

PATIENT
  Age: 67 Year
  Sex: Male
  Weight: 173 kg

DRUGS (21)
  1. CELLCEPT [Suspect]
     Active Substance: MYCOPHENOLATE MOFETIL\MYCOPHENOLATE MOFETIL HYDROCHLORIDE
     Indication: PROPHYLAXIS AGAINST TRANSPLANT REJECTION
     Dosage: 500 MILLIGRAM, TWO TIMES A DAY
     Route: 042
     Dates: start: 20210623
  2. TEPADINA [Concomitant]
     Active Substance: THIOTEPA
     Indication: STEM CELL TRANSPLANT
     Dosage: 375 MILLIGRAM, ONCE A DAY
     Route: 042
     Dates: start: 20210612
  3. UROMITEXAN [Concomitant]
     Active Substance: MESNA
     Indication: CHEMOTHERAPY UROTHELIAL TOXICITY ATTENUATION
     Dosage: 1130 MILLIGRAM, ONCE A DAY
     Route: 042
     Dates: start: 20210621
  4. VALACYCLOVIR [Suspect]
     Active Substance: VALACYCLOVIR HYDROCHLORIDE
     Indication: ANTIVIRAL PROPHYLAXIS
     Dosage: 500 MILLIGRAM, TWO TIMES A DAY
     Route: 048
     Dates: start: 20210623
  5. ENDOXAN [Concomitant]
     Active Substance: CYCLOPHOSPHAMIDE
     Indication: STEM CELL TRANSPLANT
     Dosage: 375 MILLIGRAM, ONCE A DAY
     Route: 042
     Dates: start: 20210621, end: 20210622
  6. FLUDARABINE TEVA [Concomitant]
     Active Substance: FLUDARABINE PHOSPHATE
     Indication: STEM CELL TRANSPLANT
     Dosage: 76 MILLIGRAM, ONCE A DAY
     Route: 042
     Dates: start: 20210613
  7. ONBREZ BREEZHALER [Concomitant]
     Active Substance: INDACATEROL
     Indication: CHRONIC OBSTRUCTIVE PULMONARY DISEASE
     Dosage: 150 MICROGRAM, ONCE A DAY(0?0?1)
     Route: 055
  8. VENTOLINE [Concomitant]
     Active Substance: ALBUTEROL
     Indication: CHRONIC OBSTRUCTIVE PULMONARY DISEASE
     Dosage: 200 MICROGRAM, AS NECESSARY
     Route: 055
     Dates: start: 202012
  9. ICLUSIG [Concomitant]
     Active Substance: PONATINIB
     Indication: PHILADELPHIA POSITIVE CHRONIC MYELOID LEUKAEMIA
     Dosage: 30 MILLIGRAM, ONCE A DAY
     Route: 048
     Dates: start: 20200820
  10. GABAPENTIN ARROW [Suspect]
     Active Substance: GABAPENTIN
     Indication: NEURALGIA
     Dosage: 200 MILLIGRAM, 3 TIMES A DAY(200MG 1?1?1)
     Route: 048
     Dates: start: 20210628, end: 20210702
  11. GABAPENTIN ARROW [Suspect]
     Active Substance: GABAPENTIN
     Dosage: 300 MILLIGRAM, 3 TIMES A DAY(300MG 1?1?1)
     Route: 048
     Dates: start: 20210702, end: 20210706
  12. SKENAN [Suspect]
     Active Substance: MORPHINE SULFATE
     Indication: NEURALGIA
     Dosage: 10 MILLIGRAM, TWO TIMES A DAY
     Route: 048
     Dates: start: 20210628, end: 20210703
  13. KARDEGIC [Concomitant]
     Active Substance: ASPIRIN DL-LYSINE
     Indication: CARDIOVASCULAR EVENT PROPHYLAXIS
     Dosage: 75 MILLIGRAM, ONCE A DAY
     Route: 048
     Dates: start: 202012
  14. PRAVASTATINE [Concomitant]
     Active Substance: PRAVASTATIN
     Indication: HYPERCHOLESTEROLAEMIA
     Dosage: 20 MILLIGRAM, ONCE A DAY(20MG 0?0?1)
     Route: 048
     Dates: start: 202012
  15. PIPERACILLIN/TAZOBACTAM PANPHARMA [Suspect]
     Active Substance: PIPERACILLIN SODIUM\TAZOBACTAM SODIUM
     Indication: FEBRILE BONE MARROW APLASIA
     Dosage: 4 GRAM, FOUR TIMES/DAY
     Route: 042
     Dates: start: 20210622, end: 20210706
  16. BUSILVEX [Concomitant]
     Active Substance: BUSULFAN
     Indication: STEM CELL TRANSPLANT
     Dosage: 240 MILLIGRAM, ONCE A DAY
     Route: 042
     Dates: start: 20210615
  17. DELURSAN [Concomitant]
     Active Substance: URSODIOL
     Indication: CHOLESTASIS
     Dosage: 250 MILLIGRAM, 3 TIMES A DAY
     Route: 048
  18. SANDIMMUN [Suspect]
     Active Substance: CYCLOSPORINE
     Indication: PROPHYLAXIS AGAINST TRANSPLANT REJECTION
     Dosage: 110 MILLIGRAM, ONCE A DAY
     Route: 042
     Dates: start: 20210623, end: 20210628
  19. PRAZEPAM [Concomitant]
     Active Substance: PRAZEPAM
     Indication: ANXIETY
     Dosage: 5 MILLIGRAM, 3 TIMES A DAY(10MG 0.5?0.5?1)
     Route: 048
  20. SANDIMMUN [Suspect]
     Active Substance: CYCLOSPORINE
     Dosage: 80 MILLIGRAM, ONCE A DAY
     Route: 042
     Dates: start: 20210628, end: 20210702
  21. SANDIMMUN [Suspect]
     Active Substance: CYCLOSPORINE
     Dosage: 60 MILLIGRAM, ONCE A DAY
     Route: 042
     Dates: start: 20210702

REACTIONS (1)
  - Confusional state [Recovered/Resolved]

NARRATIVE: CASE EVENT DATE: 20210703
